FAERS Safety Report 4937771-1 (Version None)
Quarter: 2006Q1

REPORT INFORMATION
  Report Type: 
  Country: None (occurrence: None)
  Receive Date: 20060306
  Receipt Date: 20060221
  Transmission Date: 20060701
  Serious: Yes (Hospitalization)
  Sender: FDA-Public Use
  Company Number: HQWYE939923FEB06

PATIENT
  Age: 11 Year
  Sex: Male

DRUGS (2)
  1. ADVIL [Suspect]
     Indication: NASOPHARYNGITIS
     Dosage: SEE IMAGE, ORAL
     Route: 048
  2. ADVIL [Suspect]
     Indication: PAIN IN EXTREMITY
     Dosage: SEE IMAGE, ORAL
     Route: 048

REACTIONS (20)
  - AGGRESSION [None]
  - ALANINE AMINOTRANSFERASE INCREASED [None]
  - ANAPHYLACTIC REACTION [None]
  - ASPARTATE AMINOTRANSFERASE INCREASED [None]
  - ATRIAL FIBRILLATION [None]
  - BLOOD AMYLASE INCREASED [None]
  - COLLAGEN-VASCULAR DISEASE [None]
  - CONDITION AGGRAVATED [None]
  - CONFUSIONAL STATE [None]
  - CONJUNCTIVITIS [None]
  - GENERAL PHYSICAL HEALTH DETERIORATION [None]
  - HYPERSENSITIVITY [None]
  - HYPOTENSION [None]
  - LIPASE INCREASED [None]
  - LOSS OF CONSCIOUSNESS [None]
  - METABOLIC ACIDOSIS [None]
  - PLATELET COUNT DECREASED [None]
  - POOR PERIPHERAL CIRCULATION [None]
  - SEPSIS [None]
  - SYSTEMIC LUPUS ERYTHEMATOSUS [None]
